FAERS Safety Report 5067489-9 (Version None)
Quarter: 2006Q3

REPORT INFORMATION
  Report Type: 
  Country: None (occurrence: None)
  Receive Date: 20060728
  Receipt Date: 20060712
  Transmission Date: 20061208
  Serious: Yes (Other)
  Sender: FDA-Public Use
  Company Number: US200607002217

PATIENT
  Age: 61 Year
  Sex: Female
  Weight: 66.7 kg

DRUGS (6)
  1. HUMALOG [Suspect]
     Indication: DIABETES MELLITUS
     Dosage: SEE IMAGE
     Dates: start: 19960101
  2. HUMALOG [Suspect]
     Indication: DIABETES MELLITUS
     Dosage: SEE IMAGE
     Dates: start: 19960101
  3. HUMALOG [Suspect]
     Indication: DIABETES MELLITUS
     Dosage: SEE IMAGE
     Dates: start: 19960101
  4. HUMALOG [Suspect]
  5. HUAMLOG LISPRO (LISPRO LISPRO) PEN, DISPOSABLE [Suspect]
     Indication: DIABETES MELLITUS
  6. GLUCAGON [Suspect]
     Indication: BLOOD GLUCOSE DECREASED
     Dosage: AS NEEDED

REACTIONS (12)
  - BLOOD GLUCOSE DECREASED [None]
  - BLOOD GLUCOSE FLUCTUATION [None]
  - BLOOD GLUCOSE INCREASED [None]
  - DIABETES MELLITUS INSULIN-DEPENDENT [None]
  - DRUG INEFFECTIVE [None]
  - HEPATOCELLULAR DAMAGE [None]
  - LIMB INJURY [None]
  - NEUROPATHY PERIPHERAL [None]
  - OEDEMA PERIPHERAL [None]
  - PAIN IN EXTREMITY [None]
  - PHARMACEUTICAL PRODUCT COMPLAINT [None]
  - TREMOR [None]
